FAERS Safety Report 13286869 (Version 16)
Quarter: 2024Q4

REPORT INFORMATION
  Report Type: Report from Study
  Country: CA (occurrence: CA)
  Receive Date: 20170301
  Receipt Date: 20241230
  Transmission Date: 20250114
  Serious: Yes (Hospitalization)
  Sender: ROCHE
  Company Number: CA-002147023-PHHY2016CA084966

PATIENT
  Age: 51 Year
  Sex: Male

DRUGS (18)
  1. XOLAIR [Suspect]
     Active Substance: OMALIZUMAB
     Indication: Asthma
     Route: 058
     Dates: start: 20160615
  2. XOLAIR [Suspect]
     Active Substance: OMALIZUMAB
     Route: 058
     Dates: start: 20170213
  3. XOLAIR [Suspect]
     Active Substance: OMALIZUMAB
     Route: 058
     Dates: start: 20170315
  4. XOLAIR [Suspect]
     Active Substance: OMALIZUMAB
     Route: 058
     Dates: start: 20170720
  5. XOLAIR [Suspect]
     Active Substance: OMALIZUMAB
     Route: 058
     Dates: start: 20180111
  6. XOLAIR [Suspect]
     Active Substance: OMALIZUMAB
     Route: 058
     Dates: start: 20181003
  7. XOLAIR [Suspect]
     Active Substance: OMALIZUMAB
     Route: 058
     Dates: start: 20181018
  8. XOLAIR [Suspect]
     Active Substance: OMALIZUMAB
     Route: 058
     Dates: start: 20181227
  9. XOLAIR [Suspect]
     Active Substance: OMALIZUMAB
     Route: 058
     Dates: start: 20190417
  10. XOLAIR [Suspect]
     Active Substance: OMALIZUMAB
     Route: 058
     Dates: start: 20200219
  11. XOLAIR [Suspect]
     Active Substance: OMALIZUMAB
     Route: 058
     Dates: start: 20180613
  12. XOLAIR [Suspect]
     Active Substance: OMALIZUMAB
     Route: 058
     Dates: start: 20160616
  13. XOLAIR [Suspect]
     Active Substance: OMALIZUMAB
     Route: 058
     Dates: start: 20210422
  14. XOLAIR [Suspect]
     Active Substance: OMALIZUMAB
     Route: 058
  15. XOLAIR [Suspect]
     Active Substance: OMALIZUMAB
     Route: 058
     Dates: start: 20210413
  16. SYMBICORT [Concomitant]
     Active Substance: BUDESONIDE\FORMOTEROL FUMARATE DIHYDRATE
     Indication: Product used for unknown indication
     Dosage: 2 DF, BID
     Route: 065
     Dates: start: 20160413
  17. SINGULAIR [Concomitant]
     Active Substance: MONTELUKAST SODIUM
     Indication: Product used for unknown indication
     Dosage: UNK
     Route: 065
  18. EBASTINE [Concomitant]
     Active Substance: EBASTINE
     Indication: Product used for unknown indication
     Dosage: 2 DF, BID
     Route: 065
     Dates: start: 20161101

REACTIONS (20)
  - Myocardial infarction [Recovering/Resolving]
  - Chest pain [Unknown]
  - Chest discomfort [Unknown]
  - Temperature regulation disorder [Unknown]
  - Back pain [Not Recovered/Not Resolved]
  - Influenza [Unknown]
  - Discomfort [Unknown]
  - Productive cough [Unknown]
  - Cough [Unknown]
  - Sensitivity to weather change [Unknown]
  - Dyspnoea exertional [Unknown]
  - Weight increased [Unknown]
  - Asthma [Unknown]
  - Dyspnoea [Unknown]
  - Weight decreased [Unknown]
  - Blood pressure systolic increased [Unknown]
  - Nasopharyngitis [Unknown]
  - COVID-19 [Unknown]
  - Throat clearing [Unknown]
  - Sputum discoloured [Unknown]

NARRATIVE: CASE EVENT DATE: 20160615
